FAERS Safety Report 15112271 (Version 2)
Quarter: 2018Q3

REPORT INFORMATION
  Report Type: Spontaneous
  Country: US (occurrence: US)
  Receive Date: 20180705
  Receipt Date: 20180712
  Transmission Date: 20181010
  Serious: No
  Sender: FDA-Public Use
  Company Number: US-BIOGEN-2018BI00601328

PATIENT
  Age: 33 Year
  Sex: Male

DRUGS (2)
  1. AVONEX [Suspect]
     Active Substance: INTERFERON BETA-1A
     Route: 030
     Dates: start: 20180310
  2. AVONEX [Suspect]
     Active Substance: INTERFERON BETA-1A
     Indication: MULTIPLE SCLEROSIS
     Route: 030
     Dates: start: 201802

REACTIONS (6)
  - Influenza like illness [Unknown]
  - Drug dose omission [Not Recovered/Not Resolved]
  - Injection site pain [Recovered/Resolved]
  - Hyperhidrosis [Recovered/Resolved]
  - Device malfunction [Not Recovered/Not Resolved]
  - Accidental underdose [Unknown]

NARRATIVE: CASE EVENT DATE: 201803
